APPROVED DRUG PRODUCT: FOMEPIZOLE
Active Ingredient: FOMEPIZOLE
Strength: 1.5GM/1.5ML (1GM/ML)
Dosage Form/Route: INJECTABLE;INJECTION
Application: A079033 | Product #001
Applicant: MYLAN INSTITUTIONAL LLC
Approved: Apr 7, 2009 | RLD: No | RS: No | Type: DISCN